FAERS Safety Report 7511071-8 (Version None)
Quarter: 2011Q2

REPORT INFORMATION
  Report Type: 
  Country: None (occurrence: None)
  Receive Date: 20110519
  Receipt Date: 20110504
  Transmission Date: 20111010
  Serious: Yes (Hospitalization, Other)
  Sender: FDA-Public Use
  Company Number: 2011MA005041

PATIENT
  Age: 2 Year
  Sex: Male

DRUGS (1)
  1. CLONIDINE HYDROCHLORIDE [Suspect]

REACTIONS (7)
  - COMA SCALE ABNORMAL [None]
  - LETHARGY [None]
  - ACCIDENTAL EXPOSURE [None]
  - HYPOTENSION [None]
  - MIOSIS [None]
  - DRUG LEVEL INCREASED [None]
  - HYPOTONIA [None]
